FAERS Safety Report 15282857 (Version 1)
Quarter: 2018Q4

REPORT INFORMATION
  Report Type: Spontaneous
  Country: DE (occurrence: DE)
  Receive Date: 20180816
  Receipt Date: 20180816
  Transmission Date: 20190204
  Serious: Yes (Life-Threatening, Hospitalization, Other)
  Sender: FDA-Public Use
  Company Number: DE-AUROBINDO-AUR-APL-2018-041396

PATIENT
  Age: 53 Year
  Sex: Male
  Weight: 111 kg

DRUGS (13)
  1. 5-FU                               /00098801/ [Suspect]
     Active Substance: FLUOROURACIL
     Indication: COLORECTAL CANCER METASTATIC
     Dosage: 400 MILLIGRAM/SQ. METER (880 MG)
     Route: 040
     Dates: start: 20121218, end: 20130718
  2. OXALIPLATIN. [Suspect]
     Active Substance: OXALIPLATIN
     Dosage: 85 MILLIGRAM/SQ. METER, UNK
     Route: 042
     Dates: start: 20130129, end: 20130716
  3. CALCIUM FOLINATE [Suspect]
     Active Substance: LEUCOVORIN CALCIUM
     Indication: COLORECTAL CANCER METASTATIC
     Dosage: 400 MILLIGRAM/SQ. METER (880 MG)
     Route: 042
     Dates: start: 20121218, end: 20130102
  4. 5-FU                               /00098801/ [Suspect]
     Active Substance: FLUOROURACIL
     Dosage: 2400 MILLIGRAM/SQ. METER (5275-5300MG; OVER 48 HOURS ONCE PER CYCLE)
     Route: 041
     Dates: start: 20121218, end: 20130718
  5. XELODA [Concomitant]
     Active Substance: CAPECITABINE
     Dosage: 4 DOSAGE FORM, DAILY (4 TABLETS PER DAY)
     Route: 048
     Dates: start: 20130813, end: 20130828
  6. OXALIPLATIN. [Suspect]
     Active Substance: OXALIPLATIN
     Indication: COLORECTAL CANCER METASTATIC
     Dosage: 85 MILLIGRAM/SQ. METER (185 MG)
     Route: 042
     Dates: start: 20121218, end: 20130326
  7. GRANISETRON [Concomitant]
     Active Substance: GRANISETRON
     Indication: VOMITING
     Dosage: 1 MILLIGRAM, DAILY
     Route: 048
     Dates: start: 20130717, end: 20130718
  8. METOCLOPRAMID                      /00041901/ [Concomitant]
     Active Substance: METOCLOPRAMIDE
     Indication: VOMITING
     Dosage: 30 MILLIGRAM, DAILY
     Route: 048
     Dates: start: 20130717, end: 20130718
  9. FORTECORTIN                        /00016001/ [Concomitant]
     Active Substance: DEXAMETHASONE
     Indication: VOMITING
     Dosage: 8 MILLIGRAM, DAILY
     Route: 048
     Dates: start: 20130717, end: 20130718
  10. CALCIUM FOLINATE [Suspect]
     Active Substance: LEUCOVORIN CALCIUM
     Dosage: 400 MILLIGRAM/SQ. METER (LAST DOSE PRIOR TO SAE 16/JUL/2013880MG)
     Route: 042
     Dates: start: 20130129, end: 20130716
  11. BEVACIZUMAB. [Suspect]
     Active Substance: BEVACIZUMAB
     Indication: COLORECTAL CANCER METASTATIC
     Dosage: 550 MILLIGRAM (LAST DOSE PRIOR TO SAE 16/JUL/2013)
     Route: 042
     Dates: start: 20130129, end: 20130716
  12. XELODA [Concomitant]
     Active Substance: CAPECITABINE
     Indication: CHEMOTHERAPY
     Dosage: 4 DOSAGE FORM, DAILY
     Route: 048
     Dates: start: 20130813, end: 20130828
  13. PANTOZOL [Concomitant]
     Active Substance: PANTOPRAZOLE SODIUM
     Indication: PRODUCT USED FOR UNKNOWN INDICATION
     Dosage: UNK
     Route: 065
     Dates: start: 20130725

REACTIONS (2)
  - Ileus [Recovered/Resolved]
  - Bursitis [Recovered/Resolved]

NARRATIVE: CASE EVENT DATE: 20130716
